FAERS Safety Report 23734096 (Version 1)
Quarter: 2024Q2

REPORT INFORMATION
  Report Type: Spontaneous
  Country: US (occurrence: US)
  Receive Date: 20240412
  Receipt Date: 20240412
  Transmission Date: 20240716
  Serious: Yes (Hospitalization, Other)
  Sender: FDA-Public Use
  Company Number: US-PFIZER INC-PV202400045271

PATIENT
  Age: 55 Year
  Sex: Female
  Weight: 70 kg

DRUGS (114)
  1. ENBREL [Suspect]
     Active Substance: ETANERCEPT
     Indication: Pain
     Dosage: UNK
     Route: 065
  2. ENBREL [Suspect]
     Active Substance: ETANERCEPT
     Indication: Dizziness
     Dosage: UNK
     Route: 065
  3. DOXYCYCLINE HYCLATE [Suspect]
     Active Substance: DOXYCYCLINE HYCLATE
     Indication: Dizziness
     Dosage: UNK
     Route: 065
  4. DOXYCYCLINE HYCLATE [Suspect]
     Active Substance: DOXYCYCLINE HYCLATE
     Indication: Pain
     Dosage: UNK
     Route: 065
  5. ERYTHROMYCIN [Suspect]
     Active Substance: ERYTHROMYCIN
     Indication: Pain
     Dosage: UNK
     Route: 065
  6. ERYTHROMYCIN [Suspect]
     Active Substance: ERYTHROMYCIN
     Indication: Dizziness
     Dosage: UNK
     Route: 065
  7. SULFASALAZINE [Suspect]
     Active Substance: SULFASALAZINE
     Indication: Dizziness
     Dosage: UNK
     Route: 065
  8. SULFASALAZINE [Suspect]
     Active Substance: SULFASALAZINE
     Indication: Pain
     Dosage: UNK
     Route: 065
  9. POTASSIUM CHLORIDE [Suspect]
     Active Substance: POTASSIUM CHLORIDE
     Indication: Dizziness
     Dosage: UNK
     Route: 065
  10. POTASSIUM CHLORIDE [Suspect]
     Active Substance: POTASSIUM CHLORIDE
     Indication: Pain
     Dosage: UNK
     Route: 065
  11. METHOTREXATE SODIUM [Suspect]
     Active Substance: METHOTREXATE SODIUM
     Indication: Dizziness
     Dosage: UNK
     Route: 065
  12. METHOTREXATE SODIUM [Suspect]
     Active Substance: METHOTREXATE SODIUM
     Indication: Pain
     Dosage: UNK
     Route: 065
  13. METRONIDAZOLE [Suspect]
     Active Substance: METRONIDAZOLE
     Indication: Dizziness
     Dosage: UNK
     Route: 065
  14. METRONIDAZOLE [Suspect]
     Active Substance: METRONIDAZOLE
     Indication: Pain
     Dosage: UNK
     Route: 065
  15. ISORDIL [Suspect]
     Active Substance: ISOSORBIDE DINITRATE
     Indication: Pain
     Dosage: UNK
     Route: 065
  16. ISORDIL [Suspect]
     Active Substance: ISOSORBIDE DINITRATE
     Indication: Dizziness
     Dosage: UNK
     Route: 065
  17. AMPICILLIN [Suspect]
     Active Substance: AMPICILLIN
     Indication: Pain
     Dosage: UNK
     Route: 065
  18. AMPICILLIN [Suspect]
     Active Substance: AMPICILLIN
     Indication: Dizziness
     Dosage: UNK
     Route: 065
  19. CIPROFLOXACIN [Suspect]
     Active Substance: CIPROFLOXACIN
     Indication: Dizziness
     Dosage: UNK
     Route: 065
  20. CIPROFLOXACIN [Suspect]
     Active Substance: CIPROFLOXACIN
     Indication: Pain
     Dosage: UNK
     Route: 065
  21. ANTIVERT [Suspect]
     Active Substance: MECLIZINE HYDROCHLORIDE
     Indication: Dizziness
     Dosage: UNK
     Route: 065
  22. ANTIVERT [Suspect]
     Active Substance: MECLIZINE HYDROCHLORIDE
     Indication: Pain
     Dosage: UNK
     Route: 065
  23. DILAUDID [Suspect]
     Active Substance: HYDROMORPHONE HYDROCHLORIDE
     Indication: Dizziness
     Dosage: UNK
     Route: 065
  24. DILAUDID [Suspect]
     Active Substance: HYDROMORPHONE HYDROCHLORIDE
     Indication: Pain
     Dosage: UNK
     Route: 065
  25. LYRICA [Suspect]
     Active Substance: PREGABALIN
     Indication: Dizziness
     Dosage: UNK
     Route: 065
  26. LYRICA [Suspect]
     Active Substance: PREGABALIN
     Indication: Pain
     Dosage: UNK
     Route: 065
  27. LIALDA [Suspect]
     Active Substance: MESALAMINE
     Indication: Dizziness
     Dosage: UNK
     Route: 065
  28. LIALDA [Suspect]
     Active Substance: MESALAMINE
     Indication: Pain
     Dosage: UNK
     Route: 065
  29. LASIX [Suspect]
     Active Substance: FUROSEMIDE
     Indication: Dizziness
     Dosage: UNK
     Route: 065
  30. LASIX [Suspect]
     Active Substance: FUROSEMIDE
     Indication: Pain
     Dosage: UNK
     Route: 065
  31. TRILEPTAL [Suspect]
     Active Substance: OXCARBAZEPINE
     Indication: Dizziness
     Dosage: UNK
     Route: 065
  32. TRILEPTAL [Suspect]
     Active Substance: OXCARBAZEPINE
     Indication: Pain
     Dosage: UNK
     Route: 065
  33. ZYRTEC [Suspect]
     Active Substance: CETIRIZINE HYDROCHLORIDE
     Indication: Dizziness
     Dosage: UNK
     Route: 065
  34. ZYRTEC [Suspect]
     Active Substance: CETIRIZINE HYDROCHLORIDE
     Indication: Pain
     Dosage: UNK
     Route: 065
  35. ABREVA [Suspect]
     Active Substance: DOCOSANOL
     Indication: Dizziness
     Dosage: UNK
     Route: 065
  36. ABREVA [Suspect]
     Active Substance: DOCOSANOL
     Indication: Pain
     Dosage: UNK
     Route: 065
  37. RITUXAN [Suspect]
     Active Substance: RITUXIMAB
     Indication: Dizziness
     Dosage: UNK
     Route: 065
  38. RITUXAN [Suspect]
     Active Substance: RITUXIMAB
     Indication: Pain
     Dosage: UNK
     Route: 065
  39. ACTEMRA [Suspect]
     Active Substance: TOCILIZUMAB
     Indication: Dizziness
     Dosage: UNK
     Route: 065
  40. ACTEMRA [Suspect]
     Active Substance: TOCILIZUMAB
     Indication: Pain
     Dosage: UNK
     Route: 065
  41. PLAQUENIL [Suspect]
     Active Substance: HYDROXYCHLOROQUINE SULFATE
     Indication: Dizziness
     Dosage: UNK
     Route: 065
  42. PLAQUENIL [Suspect]
     Active Substance: HYDROXYCHLOROQUINE SULFATE
     Indication: Pain
     Dosage: UNK
     Route: 065
  43. DIAMOX SEQUELS [Suspect]
     Active Substance: ACETAZOLAMIDE
     Indication: Product used for unknown indication
     Dosage: UNK
     Route: 065
  44. SUDAFED [Suspect]
     Active Substance: PSEUDOEPHEDRINE HYDROCHLORIDE
     Indication: Dizziness
     Dosage: UNK
     Route: 065
  45. SUDAFED [Suspect]
     Active Substance: PSEUDOEPHEDRINE HYDROCHLORIDE
     Indication: Pain
     Dosage: UNK
     Route: 065
  46. ZENPEP [Suspect]
     Active Substance: PANCRELIPASE AMYLASE\PANCRELIPASE LIPASE\PANCRELIPASE PROTEASE
     Indication: Dizziness
     Dosage: UNK
     Route: 065
  47. ZENPEP [Suspect]
     Active Substance: PANCRELIPASE AMYLASE\PANCRELIPASE LIPASE\PANCRELIPASE PROTEASE
     Indication: Pain
     Dosage: UNK
     Route: 065
  48. XANAX [Suspect]
     Active Substance: ALPRAZOLAM
     Indication: Dizziness
     Dosage: UNK
     Route: 065
  49. XANAX [Suspect]
     Active Substance: ALPRAZOLAM
     Indication: Pain
     Dosage: UNK
     Route: 065
  50. COMPAZINE [Suspect]
     Active Substance: PROCHLORPERAZINE MALEATE
     Indication: Dizziness
     Dosage: UNK
     Route: 065
  51. COMPAZINE [Suspect]
     Active Substance: PROCHLORPERAZINE MALEATE
     Indication: Pain
     Dosage: UNK
     Route: 065
  52. BACTRIM [Suspect]
     Active Substance: SULFAMETHOXAZOLE\TRIMETHOPRIM
     Indication: Dizziness
     Dosage: UNK
     Route: 065
  53. BACTRIM [Suspect]
     Active Substance: SULFAMETHOXAZOLE\TRIMETHOPRIM
     Indication: Pain
     Dosage: UNK
     Route: 065
  54. ARAVA [Suspect]
     Active Substance: LEFLUNOMIDE
     Indication: Dizziness
     Dosage: UNK
     Route: 065
  55. ARAVA [Suspect]
     Active Substance: LEFLUNOMIDE
     Indication: Pain
     Dosage: UNK
     Route: 065
  56. HUMIRA [Suspect]
     Active Substance: ADALIMUMAB
     Indication: Dizziness
     Dosage: UNK
     Route: 065
  57. HUMIRA [Suspect]
     Active Substance: ADALIMUMAB
     Indication: Pain
     Dosage: UNK
     Route: 065
  58. GEODON [Suspect]
     Active Substance: ZIPRASIDONE HYDROCHLORIDE\ZIPRASIDONE MESYLATE
     Indication: Dizziness
     Dosage: UNK
     Route: 065
  59. GEODON [Suspect]
     Active Substance: ZIPRASIDONE HYDROCHLORIDE\ZIPRASIDONE MESYLATE
     Indication: Pain
     Dosage: UNK
     Route: 065
  60. KEFLEX [Suspect]
     Active Substance: CEPHALEXIN
     Indication: Dizziness
     Dosage: UNK
     Route: 065
  61. KEFLEX [Suspect]
     Active Substance: CEPHALEXIN
     Indication: Pain
     Dosage: UNK
     Route: 065
  62. CITALOPRAM HYDROBROMIDE [Suspect]
     Active Substance: CITALOPRAM HYDROBROMIDE
     Indication: Dizziness
     Dosage: UNK
     Route: 065
  63. CITALOPRAM HYDROBROMIDE [Suspect]
     Active Substance: CITALOPRAM HYDROBROMIDE
     Indication: Pain
     Dosage: UNK
     Route: 065
  64. MESALAMINE [Suspect]
     Active Substance: MESALAMINE
     Indication: Dizziness
     Dosage: UNK
     Route: 065
  65. MESALAMINE [Suspect]
     Active Substance: MESALAMINE
     Indication: Pain
     Dosage: UNK
     Route: 065
  66. MECLIZINE HYDROCHLORIDE [Suspect]
     Active Substance: MECLIZINE HYDROCHLORIDE
     Indication: Dizziness
     Dosage: UNK
     Route: 065
  67. MECLIZINE HYDROCHLORIDE [Suspect]
     Active Substance: MECLIZINE HYDROCHLORIDE
     Indication: Pain
     Dosage: UNK
     Route: 065
  68. CYCLOSPORINE [Suspect]
     Active Substance: CYCLOSPORINE
     Indication: Dizziness
     Dosage: UNK
     Route: 065
  69. CYCLOSPORINE [Suspect]
     Active Substance: CYCLOSPORINE
     Indication: Pain
     Dosage: UNK
     Route: 065
  70. COLCHICINE [Suspect]
     Active Substance: COLCHICINE
     Indication: Dizziness
     Dosage: UNK
     Route: 065
  71. COLCHICINE [Suspect]
     Active Substance: COLCHICINE
     Indication: Pain
     Dosage: UNK
     Route: 065
  72. FERROUS SULFATE ANHYDROUS [Suspect]
     Active Substance: FERROUS SULFATE ANHYDROUS
     Indication: Dizziness
     Dosage: UNK
     Route: 065
  73. FERROUS SULFATE ANHYDROUS [Suspect]
     Active Substance: FERROUS SULFATE ANHYDROUS
     Indication: Pain
     Dosage: UNK
     Route: 065
  74. HEPATITIS B VIRUS VACCINE [Suspect]
     Active Substance: HEPATITIS B VIRUS VACCINE
     Indication: Dizziness
     Dosage: UNK
     Route: 065
  75. HEPATITIS B VIRUS VACCINE [Suspect]
     Active Substance: HEPATITIS B VIRUS VACCINE
     Indication: Pain
     Dosage: UNK
     Route: 065
  76. TAMIFLU [Concomitant]
     Active Substance: OSELTAMIVIR PHOSPHATE
     Dosage: UNK
  77. INFLUENZA VIRUS VACCINE [Concomitant]
     Active Substance: INFLUENZA VIRUS VACCINE
     Dosage: UNK
  78. VICODIN [Concomitant]
     Active Substance: ACETAMINOPHEN\HYDROCODONE BITARTRATE
     Dosage: UNK
  79. PIPERACILLIN AND TAZOBACTAM [Concomitant]
     Active Substance: PIPERACILLIN SODIUM\TAZOBACTAM SODIUM
     Dosage: UNK
  80. ZANTAC [Concomitant]
     Active Substance: RANITIDINE HYDROCHLORIDE
     Dosage: UNK
  81. TIZANIDINE HYDROCHLORIDE [Concomitant]
     Active Substance: TIZANIDINE HYDROCHLORIDE
     Dosage: UNK
  82. CELEXA [Concomitant]
     Active Substance: CITALOPRAM HYDROBROMIDE
     Dosage: UNK
  83. ZINC SULFATE [Concomitant]
     Active Substance: ZINC SULFATE
     Dosage: UNK
  84. SINGULAIR [Concomitant]
     Active Substance: MONTELUKAST SODIUM
     Dosage: UNK
  85. ZADITOR [Concomitant]
     Active Substance: KETOTIFEN FUMARATE
     Dosage: UNK
  86. PROTOPIC [Concomitant]
     Active Substance: TACROLIMUS
     Dosage: UNK
  87. CYANOCOBALAMIN [Concomitant]
     Active Substance: CYANOCOBALAMIN
     Dosage: UNK
  88. VITAMIN D2 [Concomitant]
     Active Substance: ERGOCALCIFEROL
     Dosage: UNK
  89. CYCLOBENZAPRINE HYDROCHLORIDE [Concomitant]
     Active Substance: CYCLOBENZAPRINE HYDROCHLORIDE
     Dosage: UNK
  90. SYNTHROID [Concomitant]
     Active Substance: LEVOTHYROXINE SODIUM
     Dosage: UNK
  91. ZOLOFT [Concomitant]
     Active Substance: SERTRALINE HYDROCHLORIDE
     Dosage: UNK
  92. RESTASIS [Concomitant]
     Active Substance: CYCLOSPORINE
     Dosage: UNK
  93. POLYVINYL ALCOHOL [Concomitant]
     Active Substance: POLYVINYL ALCOHOL
     Dosage: UNK
  94. POVIDONE [Concomitant]
     Active Substance: POVIDONE
     Dosage: UNK
  95. TRETINOIN [Concomitant]
     Active Substance: TRETINOIN
     Dosage: UNK
  96. SERETIDE [Concomitant]
     Active Substance: FLUTICASONE PROPIONATE\SALMETEROL XINAFOATE
     Dosage: UNK
  97. CHOLECALCIFEROL [Concomitant]
     Active Substance: CHOLECALCIFEROL
     Dosage: UNK
  98. MUPIROCIN [Concomitant]
     Active Substance: MUPIROCIN
     Dosage: UNK
  99. LAMOTRIGINE [Concomitant]
     Active Substance: LAMOTRIGINE
     Dosage: UNK
  100. HYDROCORTISONE [Concomitant]
     Active Substance: HYDROCORTISONE
     Dosage: UNK
  101. ALENDRONATE SODIUM [Concomitant]
     Active Substance: ALENDRONATE SODIUM
     Dosage: UNK
  102. SYSTANE (HYPROMELLOSE 2910 (4000 MPA.S)) [Concomitant]
     Active Substance: HYPROMELLOSE 2910 (4000 MPA.S)
     Dosage: UNK
  103. HYPROMELLOSES [Concomitant]
     Active Substance: HYPROMELLOSES
     Dosage: UNK
  104. MELOXICAM [Concomitant]
     Active Substance: MELOXICAM
     Dosage: UNK
  105. PROMETHAZINE [Concomitant]
     Active Substance: PROMETHAZINE HYDROCHLORIDE
     Dosage: UNK
  106. LANSOPRAZOLE [Concomitant]
     Active Substance: LANSOPRAZOLE
     Dosage: UNK
  107. TYLENOL [Concomitant]
     Active Substance: ACETAMINOPHEN
     Dosage: UNK
  108. DELTASONE N [Concomitant]
     Dosage: UNK
  109. PNEUMOCOCCAL VACCINE POLYVALENT NOS [Concomitant]
     Active Substance: PNEUMOCOCCAL VACCINE POLYVALENT
     Dosage: UNK
  110. BUDESONIDE [Concomitant]
     Active Substance: BUDESONIDE
     Dosage: UNK
  111. FOLIC ACID [Concomitant]
     Active Substance: FOLIC ACID
     Dosage: UNK
  112. MORPHINE [Concomitant]
     Active Substance: MORPHINE
     Dosage: UNK
  113. LOPERAMIDE HYDROCHLORIDE [Concomitant]
     Active Substance: LOPERAMIDE HYDROCHLORIDE
     Dosage: UNK
  114. CALCIUM CARBONATE [Concomitant]
     Active Substance: CALCIUM CARBONATE
     Dosage: UNK

REACTIONS (23)
  - Rheumatoid arthritis [Unknown]
  - Intestinal obstruction [Unknown]
  - Rhinorrhoea [Unknown]
  - Gait disturbance [Unknown]
  - Blister [Unknown]
  - Ear pain [Unknown]
  - Hypoaesthesia [Unknown]
  - Dysphoria [Unknown]
  - Hallucination [Unknown]
  - Drug tolerance [Unknown]
  - Oral pain [Unknown]
  - Photophobia [Unknown]
  - Sjogren^s syndrome [Unknown]
  - Contusion [Unknown]
  - Haemorrhage [Unknown]
  - Osteoarthritis [Unknown]
  - Chills [Unknown]
  - Visual impairment [Unknown]
  - Diarrhoea [Unknown]
  - Headache [Unknown]
  - Infection [Unknown]
  - Anaphylactic reaction [Unknown]
  - Interstitial lung disease [Unknown]

NARRATIVE: CASE EVENT DATE: 20010111
